FAERS Safety Report 9166554 (Version 1)
Quarter: 2013Q1

REPORT INFORMATION
  Report Type: Spontaneous
  Country: FR (occurrence: FR)
  Receive Date: 20130315
  Receipt Date: 20130315
  Transmission Date: 20140127
  Serious: Yes (Hospitalization, Disabling)
  Sender: FDA-Public Use
  Company Number: FR-MYLANLABS-2013S1005318

PATIENT
  Age: 26 Year
  Sex: Female

DRUGS (6)
  1. ZOLPIDEM [Suspect]
     Indication: PRODUCT USED FOR UNKNOWN INDICATION
     Route: 013
  2. ZOLPIDEM [Suspect]
     Indication: PRODUCT USED FOR UNKNOWN INDICATION
     Route: 042
  3. MIDAZOLAM [Suspect]
     Indication: ANXIOLYTIC THERAPY
     Route: 042
  4. MIDAZOLAM [Suspect]
     Indication: ANXIOLYTIC THERAPY
     Route: 042
  5. SUBUTEX [Concomitant]
     Indication: DRUG DEPENDENCE
  6. HEROIN [Concomitant]
     Indication: DRUG DEPENDENCE

REACTIONS (13)
  - Peripheral ischaemia [Recovered/Resolved]
  - Intentional drug misuse [Recovered/Resolved]
  - Wrong technique in drug usage process [Recovered/Resolved]
  - Incorrect route of drug administration [Recovered/Resolved]
  - Intentional overdose [Recovered/Resolved]
  - Drug abuse [Recovered/Resolved]
  - Off label use [Recovered/Resolved]
  - Pain in extremity [Recovered/Resolved]
  - Cyanosis [Recovered/Resolved]
  - Sensory loss [Recovered/Resolved]
  - Compartment syndrome [Recovered/Resolved]
  - Necrosis [Recovered/Resolved]
  - Drug dependence [Recovered/Resolved]
